FAERS Safety Report 7710819-7 (Version None)
Quarter: 2011Q3

REPORT INFORMATION
  Report Type: 
  Country: None (occurrence: None)
  Receive Date: 20110825
  Receipt Date: 20110816
  Transmission Date: 20111222
  Serious: Yes (Hospitalization, Other)
  Sender: FDA-Public Use
  Company Number: US-ASTRAZENECA-2011SE40488

PATIENT
  Age: 73 Year
  Sex: Female

DRUGS (3)
  1. TOPROL-XL [Suspect]
     Route: 048
  2. CRESTOR [Concomitant]
  3. PRAVACHOL [Concomitant]

REACTIONS (2)
  - HEART VALVE REPLACEMENT [None]
  - HEART RATE DECREASED [None]
